FAERS Safety Report 9661003 (Version 2)
Quarter: 2014Q1

REPORT INFORMATION
  Report Type: Not Available
  Country: FR (occurrence: FR)
  Receive Date: 20131031
  Receipt Date: 20140303
  Transmission Date: 20141002
  Serious: Yes (Hospitalization)
  Sender: FDA-Public Use
  Company Number: FR-NAPPMUNDI-GBR-2013-0016155

PATIENT
  Age: 90 Year
  Sex: Female

DRUGS (13)
  1. OXYCONTIN LP, COMPRIME PELLICULE A LIBERATION PROLONGEE [Suspect]
     Indication: PRODUCT USED FOR UNKNOWN INDICATION
     Dosage: UNK
     Route: 048
     Dates: end: 20130916
  2. PREVISCAN /00261401/ [Suspect]
     Indication: ATRIAL FIBRILLATION
     Dosage: UNK
     Route: 048
     Dates: end: 20130916
  3. DOLIPRANE [Suspect]
     Indication: BACK PAIN
     Dosage: UNK
     Route: 048
     Dates: end: 20130916
  4. LAMALINE /00764901/ [Suspect]
     Indication: PRODUCT USED FOR UNKNOWN INDICATION
     Dosage: UNK
     Route: 048
     Dates: end: 20130916
  5. XANAX [Suspect]
     Indication: PRODUCT USED FOR UNKNOWN INDICATION
     Dosage: UNK
     Route: 048
     Dates: end: 20130916
  6. SIFROL [Suspect]
     Indication: PRODUCT USED FOR UNKNOWN INDICATION
     Dosage: UNK
     Route: 048
     Dates: end: 20130916
  7. LASILIX                            /00032601/ [Concomitant]
     Dosage: 40 MG, UNK
  8. CARDENSIEL [Concomitant]
     Dosage: 2.5 MG, UNK
  9. INEXIUM                            /01479302/ [Concomitant]
     Dosage: 40 MG, UNK
  10. FLECTOR                            /00372302/ [Concomitant]
  11. ADARTREL [Concomitant]
     Dosage: 0.25 MG, UNK
  12. LANTUS [Concomitant]
  13. NOVORAPID [Concomitant]

REACTIONS (2)
  - Hepatitis [Recovering/Resolving]
  - Haematoma [Recovered/Resolved]
